FAERS Safety Report 17233255 (Version 1)
Quarter: 2020Q1

REPORT INFORMATION
  Report Type: Spontaneous
  Country: US (occurrence: US)
  Receive Date: 20200104
  Receipt Date: 20200104
  Transmission Date: 20200409
  Serious: No
  Sender: FDA-Public Use
  Company Number: US-DRREDDYS-USA/USA/19/0117743

PATIENT
  Sex: Male
  Weight: 68.85 kg

DRUGS (3)
  1. PHYTONADIONE INJECTABLE EMULSION USP NEONATAL CONCENTRATION [Suspect]
     Active Substance: PHYTONADIONE
     Indication: PRODUCT USED FOR UNKNOWN INDICATION
     Route: 065
     Dates: start: 20191215, end: 20191215
  2. LISINOPRIL. [Concomitant]
     Active Substance: LISINOPRIL
     Indication: PRODUCT USED FOR UNKNOWN INDICATION
  3. ATORVASTATIN [Concomitant]
     Active Substance: ATORVASTATIN
     Indication: PRODUCT USED FOR UNKNOWN INDICATION

REACTIONS (5)
  - Vision blurred [Recovering/Resolving]
  - Product quality issue [Unknown]
  - Accidental exposure to product [Recovering/Resolving]
  - Conjunctival abrasion [Unknown]
  - Superficial injury of eye [Recovering/Resolving]
